FAERS Safety Report 9577377 (Version 1)
Quarter: 2013Q4

REPORT INFORMATION
  Report Type: Spontaneous
  Country: US (occurrence: US)
  Receive Date: 20131001
  Receipt Date: 20131001
  Transmission Date: 20140711
  Serious: No
  Sender: FDA-Public Use
  Company Number: US-AMGEN-USASP2013007539

PATIENT
  Sex: Male

DRUGS (4)
  1. ENBREL [Suspect]
     Indication: PRODUCT USED FOR UNKNOWN INDICATION
     Dosage: 25 MG, TWICE A WEEK
     Route: 058
  2. ADVICOR [Concomitant]
     Dosage: 1000-20
  3. MULTIVITAMINS, PLAIN [Concomitant]
     Dosage: UNK
  4. PROCRIT                            /00909301/ [Concomitant]
     Dosage: 20000/ML

REACTIONS (1)
  - Therapeutic response decreased [Unknown]
